FAERS Safety Report 8593860-4 (Version None)
Quarter: 2012Q3

REPORT INFORMATION
  Report Type: 
  Country: None (occurrence: None)
  Receive Date: 20120803
  Receipt Date: 20120803
  Transmission Date: 20120928
  Serious: Yes (Other)
  Sender: FDA-Public Use
  Company Number: None

PATIENT
  Age: 36 Year
  Sex: Female
  Weight: 97.5234 kg

DRUGS (1)
  1. ESCITALOPRAM [Suspect]
     Indication: DEPRESSION
     Dosage: 20 MG 1 X DAY PO
     Route: 048
     Dates: start: 20120601, end: 20120703

REACTIONS (12)
  - CRYING [None]
  - CHEST PAIN [None]
  - INSOMNIA [None]
  - PERFORMANCE STATUS DECREASED [None]
  - SUICIDAL IDEATION [None]
  - FEELING ABNORMAL [None]
  - SELF INJURIOUS BEHAVIOUR [None]
  - PALPITATIONS [None]
  - DISTURBANCE IN ATTENTION [None]
  - DEPRESSION [None]
  - HYPERTENSION [None]
  - PRODUCT SUBSTITUTION ISSUE [None]
